FAERS Safety Report 18887725 (Version 5)
Quarter: 2021Q4

REPORT INFORMATION
  Report Type: Spontaneous
  Country: US (occurrence: US)
  Receive Date: 20210213
  Receipt Date: 20211111
  Transmission Date: 20220303
  Serious: No
  Sender: FDA-Public Use
  Company Number: US-SA-SAC20210210001309

PATIENT
  Age: 44 Year
  Sex: Female

DRUGS (3)
  1. DUPIXENT [Suspect]
     Active Substance: DUPILUMAB
     Indication: Dermatitis atopic
     Dosage: 300 MG, QOW
     Route: 058
     Dates: start: 20201007
  2. DUPIXENT [Suspect]
     Active Substance: DUPILUMAB
     Indication: Dermatitis
  3. ZOLPIDEM [Concomitant]
     Active Substance: ZOLPIDEM TARTRATE

REACTIONS (13)
  - Dysmenorrhoea [Not Recovered/Not Resolved]
  - Poor quality sleep [Not Recovered/Not Resolved]
  - Crying [Not Recovered/Not Resolved]
  - Back pain [Not Recovered/Not Resolved]
  - Pruritus [Not Recovered/Not Resolved]
  - Scratch [Not Recovered/Not Resolved]
  - Skin injury [Unknown]
  - Hypersomnia [Unknown]
  - Arthralgia [Not Recovered/Not Resolved]
  - Therapeutic response decreased [Unknown]
  - Product dose omission in error [Unknown]
  - Therapeutic response delayed [Unknown]
  - Product use in unapproved indication [Unknown]

NARRATIVE: CASE EVENT DATE: 20201007
